FAERS Safety Report 6728663-6 (Version None)
Quarter: 2010Q2

REPORT INFORMATION
  Report Type: 
  Country: None (occurrence: None)
  Receive Date: 20100517
  Receipt Date: 20100507
  Transmission Date: 20101027
  Serious: Yes (Other)
  Sender: FDA-Public Use
  Company Number: US-WATSON-2010-06406

PATIENT
  Age: 62 Year
  Sex: Male

DRUGS (1)
  1. RAPAFLO [Suspect]
     Indication: DRUG USE FOR UNKNOWN INDICATION
     Dosage: UNK
     Route: 048

REACTIONS (3)
  - HEAD INJURY [None]
  - SUTURE INSERTION [None]
  - SYNCOPE [None]
